FAERS Safety Report 24435291 (Version 1)
Quarter: 2024Q4

REPORT INFORMATION
  Report Type: Report from Study
  Country: IT (occurrence: IT)
  Receive Date: 20241015
  Receipt Date: 20241015
  Transmission Date: 20250114
  Serious: Yes (Death, Other)
  Sender: EXELIXIS
  Company Number: IT-IPSEN Group, Research and Development-2024-00766

PATIENT

DRUGS (24)
  1. CABOZANTINIB [Suspect]
     Active Substance: CABOZANTINIB
     Indication: Renal cell carcinoma
     Dosage: 40 MG, QD
     Route: 048
     Dates: start: 20231123, end: 20231220
  2. CABOZANTINIB [Suspect]
     Active Substance: CABOZANTINIB
     Dosage: 20 MG, QD
     Route: 048
     Dates: start: 20231221, end: 20240410
  3. CABOZANTINIB [Suspect]
     Active Substance: CABOZANTINIB
     Dosage: 20 MG, QD
     Route: 048
     Dates: start: 20240420, end: 20240711
  4. NIVOLUMAB [Suspect]
     Active Substance: NIVOLUMAB
     Indication: Renal cell carcinoma
     Dosage: 480 MG, ONCE
     Route: 042
     Dates: start: 20231123
  5. NIVOLUMAB [Suspect]
     Active Substance: NIVOLUMAB
     Dosage: 480 MG, ONCE
     Route: 042
     Dates: start: 20231221
  6. NIVOLUMAB [Suspect]
     Active Substance: NIVOLUMAB
     Dosage: 480 MG, ONCE
     Route: 042
     Dates: start: 20240118
  7. NIVOLUMAB [Suspect]
     Active Substance: NIVOLUMAB
     Dosage: 480 MG, ONCE
     Route: 042
     Dates: start: 20240215
  8. NIVOLUMAB [Suspect]
     Active Substance: NIVOLUMAB
     Dosage: 480 MG, ONCE
     Route: 042
     Dates: start: 20240314
  9. NIVOLUMAB [Suspect]
     Active Substance: NIVOLUMAB
     Dosage: 480 MG, ONCE
     Route: 042
     Dates: start: 20240411
  10. NIVOLUMAB [Suspect]
     Active Substance: NIVOLUMAB
     Dosage: 480 MG, ONCE
     Route: 042
     Dates: start: 20240509
  11. NIVOLUMAB [Suspect]
     Active Substance: NIVOLUMAB
     Dosage: 480 MG, ONCE
     Route: 042
     Dates: start: 20240606
  12. PALEXIA [Concomitant]
     Active Substance: TAPENTADOL HYDROCHLORIDE
     Indication: Osteoarthritis
     Dosage: UNK
     Route: 048
     Dates: end: 20240508
  13. PREDNISONE [Concomitant]
     Active Substance: PREDNISONE
     Indication: Osteoarthritis
     Dosage: UNK
     Route: 048
  14. FERACHEL [Concomitant]
     Indication: Anaemia
     Dosage: UNK
     Route: 048
  15. PANTOPRAZOLE SODIUM [Concomitant]
     Active Substance: PANTOPRAZOLE SODIUM
     Indication: Gastrooesophageal reflux disease
     Dosage: UNK
     Route: 048
  16. ESCITALOPRAM OXALATE [Concomitant]
     Active Substance: ESCITALOPRAM OXALATE
     Indication: Depression
     Dosage: UNK
     Route: 048
  17. Nodigap [Concomitant]
     Indication: Vitamin supplementation
     Dosage: UNK
     Route: 048
  18. ALLOPURINOL [Concomitant]
     Active Substance: ALLOPURINOL
     Indication: Gout
     Dosage: UNK
     Route: 048
     Dates: start: 20231027
  19. HYDROCHLOROTHIAZIDE\ZOFENOPRIL CALCIUM [Concomitant]
     Active Substance: HYDROCHLOROTHIAZIDE\ZOFENOPRIL CALCIUM
     Indication: Hypertension
     Dosage: UNK
     Route: 048
  20. LACIDIPINE [Concomitant]
     Active Substance: LACIDIPINE
     Indication: Hypertension
     Dosage: UNK
     Route: 048
  21. CRATIV [Concomitant]
     Indication: Hypercholesterolaemia
     Dosage: UNK
     Route: 048
     Dates: end: 20240508
  22. FERINJECT [Concomitant]
     Active Substance: FERRIC CARBOXYMALTOSE
     Indication: Anaemia
     Dosage: UNK
     Route: 042
     Dates: start: 20240314
  23. Levopraid [Concomitant]
     Indication: Vomiting
     Dosage: UNK
     Route: 048
     Dates: start: 20240314
  24. ACETAMINOPHEN [Concomitant]
     Active Substance: ACETAMINOPHEN
     Indication: Osteoarthritis
     Dosage: UNK
     Route: 048
     Dates: start: 20240410

REACTIONS (8)
  - Angioedema [Not Recovered/Not Resolved]
  - Decreased appetite [Fatal]
  - Dysgeusia [Recovered/Resolved]
  - Epistaxis [Recovered/Resolved]
  - Nausea [Not Recovered/Not Resolved]
  - Decreased appetite [Not Recovered/Not Resolved]
  - Fatigue [Not Recovered/Not Resolved]
  - Weight decreased [Not Recovered/Not Resolved]

NARRATIVE: CASE EVENT DATE: 20231220
